FAERS Safety Report 9040939 (Version 1)
Quarter: 2013Q1

REPORT INFORMATION
  Report Type: Report from Study
  Country: US (occurrence: US)
  Receive Date: 20130129
  Receipt Date: 20130129
  Transmission Date: 20140127
  Serious: No
  Sender: FDA-Public Use
  Company Number: US-ABBOTT-12P-163-0900632-00

PATIENT
  Age: 47 Year
  Sex: Female

DRUGS (12)
  1. HUMIRA 40 MG/0.8 ML PEN [Suspect]
     Indication: PSORIATIC ARTHROPATHY
     Dates: start: 201112
  2. METHOTREXATE [Concomitant]
     Indication: PRODUCT USED FOR UNKNOWN INDICATION
     Dosage: 4 TABS/WEEK
  3. METHOTREXATE [Concomitant]
     Dosage: 10 MG PER WEEK
  4. FOLIC ACID [Concomitant]
     Indication: PRODUCT USED FOR UNKNOWN INDICATION
     Dosage: DAILY
     Route: 048
  5. METFORMIN [Concomitant]
     Indication: PRODUCT USED FOR UNKNOWN INDICATION
     Dosage: FOUR PILLS PER DAY
     Route: 048
  6. GLIPIZIDE [Concomitant]
     Indication: DIABETES MELLITUS
  7. LOVASTATIN [Concomitant]
     Indication: BLOOD CHOLESTEROL INCREASED
     Route: 048
  8. VICTOZA [Concomitant]
     Indication: DIABETES MELLITUS
     Route: 050
  9. KLONOPIN [Concomitant]
     Indication: RESTLESS LEGS SYNDROME
     Dosage: AT BEDTIME
  10. LEXAPRO [Concomitant]
     Indication: DEPRESSION
     Route: 048
  11. PRILOSEC [Concomitant]
     Indication: GASTRIC DISORDER
     Dosage: GENERIC Q DAY
  12. HIGH BLOOD PRESSURE MEDICATION [Concomitant]
     Indication: HYPERTENSION

REACTIONS (7)
  - Injection site erythema [Recovering/Resolving]
  - Injection site discomfort [Recovering/Resolving]
  - Injection site pain [Recovering/Resolving]
  - Injection site pain [Recovering/Resolving]
  - Injection site pain [Recovering/Resolving]
  - Injection site pain [Recovering/Resolving]
  - Injection site pruritus [Recovering/Resolving]
